FAERS Safety Report 11739094 (Version 3)
Quarter: 2015Q4

REPORT INFORMATION
  Report Type: Spontaneous
  Country: US (occurrence: US)
  Receive Date: 20151113
  Receipt Date: 20151113
  Transmission Date: 20160304
  Serious: Yes (Death)
  Sender: FDA-Public Use
  Company Number: US-SA-2015SA180030

PATIENT
  Age: 63 Year
  Sex: Female

DRUGS (3)
  1. ETANERCEPT [Suspect]
     Active Substance: ETANERCEPT
     Indication: RHEUMATOID ARTHRITIS
     Route: 065
  2. PREDNISONE. [Concomitant]
     Active Substance: PREDNISONE
  3. LEFLUNOMIDE. [Suspect]
     Active Substance: LEFLUNOMIDE
     Indication: RHEUMATOID ARTHRITIS
     Route: 065

REACTIONS (12)
  - Breath sounds abnormal [Fatal]
  - Pyrexia [Fatal]
  - Dyspnoea [Fatal]
  - Productive cough [Fatal]
  - Tachypnoea [Fatal]
  - Rales [Fatal]
  - Pneumothorax [Fatal]
  - Bronchopleural fistula [Fatal]
  - Tachycardia [Fatal]
  - Rheumatoid lung [Fatal]
  - Hypoxia [Fatal]
  - Respiratory failure [Fatal]
